FAERS Safety Report 18746481 (Version 1)
Quarter: 2021Q1

REPORT INFORMATION
  Report Type: Spontaneous
  Country: US (occurrence: US)
  Receive Date: 20210115
  Receipt Date: 20210115
  Transmission Date: 20210419
  Serious: Yes (Other)
  Sender: FDA-Public Use
  Company Number: US-ASTRAZENECA-2021A004256

PATIENT
  Age: 766 Month
  Sex: Male
  Weight: 63 kg

DRUGS (14)
  1. SYMBICORT [Suspect]
     Active Substance: BUDESONIDE\FORMOTEROL FUMARATE DIHYDRATE
     Indication: EMPHYSEMA
     Dosage: 160?4.5 TWO PUFFS TWICE A DAY
     Route: 055
     Dates: start: 2006, end: 20200501
  2. TUDORZA [Suspect]
     Active Substance: ACLIDINIUM BROMIDE
     Indication: CHRONIC OBSTRUCTIVE PULMONARY DISEASE
     Dosage: UNKNOWN
     Route: 055
  3. SYMBICORT [Suspect]
     Active Substance: BUDESONIDE\FORMOTEROL FUMARATE DIHYDRATE
     Indication: CHRONIC OBSTRUCTIVE PULMONARY DISEASE
     Dosage: 160?4.5 TWO PUFFS TWICE A DAY
     Route: 055
     Dates: start: 2006, end: 20200501
  4. SYMBICORT [Suspect]
     Active Substance: BUDESONIDE\FORMOTEROL FUMARATE DIHYDRATE
     Indication: BRONCHITIS CHRONIC
     Dosage: 160?4.5 TWO PUFFS TWICE A DAY
     Route: 055
     Dates: start: 2006, end: 20200501
  5. BUDESONIDE FORMOTEROL INHALER (BUDESONIDE\FORMOTEROL FUMARATE DIHYDRATE) [Suspect]
     Active Substance: BUDESONIDE\FORMOTEROL FUMARATE DIHYDRATE
     Indication: CHRONIC OBSTRUCTIVE PULMONARY DISEASE
     Dosage: 160?4.5 MCG TWO PUFFS TWICE A DAY
     Route: 055
     Dates: start: 20200502, end: 202006
  6. TUDORZA [Suspect]
     Active Substance: ACLIDINIUM BROMIDE
     Indication: BRONCHITIS CHRONIC
     Dosage: UNKNOWN
     Route: 055
  7. SYMBICORT [Suspect]
     Active Substance: BUDESONIDE\FORMOTEROL FUMARATE DIHYDRATE
     Indication: CHRONIC OBSTRUCTIVE PULMONARY DISEASE
     Dosage: 160?4.5 TWO PUFFS TWICE A DAY
     Route: 055
     Dates: start: 202007
  8. BUDESONIDE FORMOTEROL INHALER (BUDESONIDE\FORMOTEROL FUMARATE DIHYDRATE) [Suspect]
     Active Substance: BUDESONIDE\FORMOTEROL FUMARATE DIHYDRATE
     Indication: BRONCHITIS CHRONIC
     Dosage: 160?4.5 MCG TWO PUFFS TWICE A DAY
     Route: 055
     Dates: start: 20200502, end: 202006
  9. TUDORZA [Suspect]
     Active Substance: ACLIDINIUM BROMIDE
     Indication: EMPHYSEMA
     Dosage: UNKNOWN
     Route: 055
  10. SYMBICORT [Suspect]
     Active Substance: BUDESONIDE\FORMOTEROL FUMARATE DIHYDRATE
     Indication: EMPHYSEMA
     Dosage: 160?4.5 TWO PUFFS TWICE A DAY
     Route: 055
     Dates: start: 202007
  11. VENTOLIN [Concomitant]
     Active Substance: ALBUTEROL SULFATE
     Indication: DRUG THERAPY
  12. SYMBICORT [Suspect]
     Active Substance: BUDESONIDE\FORMOTEROL FUMARATE DIHYDRATE
     Indication: BRONCHITIS CHRONIC
     Dosage: 160?4.5 TWO PUFFS TWICE A DAY
     Route: 055
     Dates: start: 202007
  13. BUDESONIDE FORMOTEROL INHALER (BUDESONIDE\FORMOTEROL FUMARATE DIHYDRATE) [Suspect]
     Active Substance: BUDESONIDE\FORMOTEROL FUMARATE DIHYDRATE
     Indication: EMPHYSEMA
     Dosage: 160?4.5 MCG TWO PUFFS TWICE A DAY
     Route: 055
     Dates: start: 20200502, end: 202006
  14. SPIRIVA [Concomitant]
     Active Substance: TIOTROPIUM BROMIDE MONOHYDRATE

REACTIONS (7)
  - Rash vesicular [Recovered/Resolved]
  - Chest discomfort [Recovered/Resolved]
  - Drug ineffective [Unknown]
  - Blood pressure increased [Not Recovered/Not Resolved]
  - Productive cough [Recovering/Resolving]
  - Weight decreased [Not Recovered/Not Resolved]
  - Chest pain [Recovering/Resolving]

NARRATIVE: CASE EVENT DATE: 202005
